FAERS Safety Report 8926553 (Version 2)
Quarter: 2012Q4

REPORT INFORMATION
  Report Type: 
  Country: GR (occurrence: GR)
  Receive Date: 20121127
  Receipt Date: 20121213
  Transmission Date: 20130627
  Serious: Yes (Other)
  Sender: FDA-Public Use
  Company Number: GR-ELI_LILLY_AND_COMPANY-GR201211006775

PATIENT
  Sex: Male

DRUGS (2)
  1. EFIENT [Suspect]
     Indication: ACUTE CORONARY SYNDROME
     Dosage: 10 mg, qd
     Route: 065
  2. EFIENT [Suspect]
     Dosage: 5 mg, qd
     Route: 065

REACTIONS (2)
  - Petechiae [Recovered/Resolved]
  - Haemorrhage [Recovered/Resolved]
